FAERS Safety Report 11393968 (Version 1)
Quarter: 2015Q3

REPORT INFORMATION
  Report Type: Spontaneous
  Country: CA (occurrence: CA)
  Receive Date: 20150819
  Receipt Date: 20150819
  Transmission Date: 20151125
  Serious: Yes (Other)
  Sender: FDA-Public Use
  Company Number: CA-ROCHE-1623025

PATIENT
  Age: 88 Year
  Sex: Male
  Weight: 76 kg

DRUGS (8)
  1. TAMIFLU [Suspect]
     Active Substance: OSELTAMIVIR PHOSPHATE
     Indication: ANTIVIRAL PROPHYLAXIS
     Dosage: THERAPY DURATION: 5 DAYS
     Route: 048
  2. METAMUCIL [Concomitant]
     Active Substance: PLANTAGO SEED
  3. COLCHICINE. [Concomitant]
     Active Substance: COLCHICINE
  4. POLYETHYLENE GLYCOL [Concomitant]
     Active Substance: POLYETHYLENE GLYCOLS
  5. SENOKOT [Concomitant]
     Active Substance: SENNOSIDES
  6. CIPRALEX [Concomitant]
     Active Substance: ESCITALOPRAM OXALATE
  7. RIVASTIGMINE. [Concomitant]
     Active Substance: RIVASTIGMINE
  8. ALLOPURINOL. [Concomitant]
     Active Substance: ALLOPURINOL
     Route: 065

REACTIONS (3)
  - Hypomania [Recovered/Resolved]
  - Speech disorder [Recovered/Resolved]
  - Hallucination, visual [Recovered/Resolved]
